FAERS Safety Report 23197392 (Version 1)
Quarter: 2023Q4

REPORT INFORMATION
  Report Type: Spontaneous
  Country: BG (occurrence: BG)
  Receive Date: 20231117
  Receipt Date: 20231117
  Transmission Date: 20240110
  Serious: Yes (Other)
  Sender: FDA-Public Use
  Company Number: BG-SUN PHARMACEUTICAL INDUSTRIES LTD-2023R1-418680

PATIENT
  Age: 56 Year
  Sex: Male

DRUGS (2)
  1. FELODIPINE [Suspect]
     Active Substance: FELODIPINE
     Indication: Hepatic steatosis
     Dosage: 2.5 MILLIGRAM, QD
     Route: 065
  2. LOSARTAN [Suspect]
     Active Substance: LOSARTAN
     Indication: Hypertension
     Dosage: 50 MILLIGRAM, QD
     Route: 065

REACTIONS (1)
  - Basal cell carcinoma [Unknown]
